FAERS Safety Report 12913976 (Version 3)
Quarter: 2016Q4

REPORT INFORMATION
  Report Type: Spontaneous
  Country: DE (occurrence: DE)
  Receive Date: 20161104
  Receipt Date: 20161222
  Transmission Date: 20170207
  Serious: Yes (Other)
  Sender: FDA-Public Use
  Company Number: DE-BAUSCH-BL-2016-026636

PATIENT
  Age: 6 Decade
  Sex: Male

DRUGS (1)
  1. GENT-OPHTAL AUGENSALBE [Suspect]
     Active Substance: GENTAMICIN SULFATE
     Indication: PRODUCT USED FOR UNKNOWN INDICATION
     Dosage: USED ONLY ONCE
     Route: 047
     Dates: start: 20161024, end: 20161024

REACTIONS (5)
  - Mouth swelling [Unknown]
  - Dyspnoea [Unknown]
  - Pharyngeal oedema [Unknown]
  - Anaphylactic shock [Unknown]
  - Erythema [Unknown]

NARRATIVE: CASE EVENT DATE: 20161024
